FAERS Safety Report 9176963 (Version 1)
Quarter: 2013Q1

REPORT INFORMATION
  Report Type: Spontaneous
  Country: US (occurrence: None)
  Receive Date: 20130320
  Receipt Date: 20130320
  Transmission Date: 20140127
  Serious: No
  Sender: FDA-Public Use
  Company Number: None

PATIENT
  Age: 43 Year
  Sex: Male

DRUGS (1)
  1. STIVARGA [Suspect]
     Indication: RECTOSIGMOID CANCER
     Route: 048
     Dates: start: 20130316, end: 20130318

REACTIONS (7)
  - Diarrhoea [None]
  - Flatulence [None]
  - Abdominal pain [None]
  - Constipation [None]
  - Haemorrhage [None]
  - Haemorrhoids [None]
  - Dysphonia [None]
